FAERS Safety Report 4918792-1 (Version None)
Quarter: 2006Q1

REPORT INFORMATION
  Report Type: 
  Country: None (occurrence: None)
  Receive Date: 20060216
  Receipt Date: 20060208
  Transmission Date: 20060701
  Serious: Yes (Hospitalization)
  Sender: FDA-Public Use
  Company Number: MK200602-0092-1

PATIENT
  Age: 22 Year
  Sex: Female

DRUGS (1)
  1. OPTIRAY 300 [Suspect]
     Indication: COMPUTERISED TOMOGRAM ABDOMEN
     Dosage: 91 ML, ONCE
     Dates: start: 20060108, end: 20060208

REACTIONS (1)
  - ANAPHYLACTIC SHOCK [None]
